FAERS Safety Report 7146611-4 (Version None)
Quarter: 2010Q4

REPORT INFORMATION
  Report Type: 
  Country: None (occurrence: None)
  Receive Date: 20101208
  Receipt Date: 20101126
  Transmission Date: 20110411
  Serious: Yes (Other)
  Sender: FDA-Public Use
  Company Number: JP-PFIZER INC-2010145472

PATIENT
  Age: 63 Year
  Sex: Female

DRUGS (5)
  1. XALATAN [Suspect]
     Indication: NORMAL TENSION GLAUCOMA
     Dosage: UNK
     Route: 047
     Dates: start: 20100803
  2. BETAMETHASONE [Concomitant]
     Indication: CONJUNCTIVITIS
     Dosage: UNK
     Route: 047
     Dates: start: 20101021, end: 20101111
  3. BETAMETHASONE [Concomitant]
     Dosage: UNK
     Route: 047
     Dates: start: 20101112
  4. CRAVIT [Concomitant]
     Indication: CONJUNCTIVITIS
     Dosage: UNK
     Route: 047
     Dates: start: 20101021, end: 20101111
  5. CRAVIT [Concomitant]
     Dosage: UNK
     Route: 047
     Dates: start: 20101112

REACTIONS (1)
  - AORTIC VALVE STENOSIS [None]
